FAERS Safety Report 7965165-3 (Version None)
Quarter: 2011Q4

REPORT INFORMATION
  Report Type: 
  Country: None (occurrence: None)
  Receive Date: 20111206
  Receipt Date: 20111206
  Transmission Date: 20120403
  Serious: No
  Sender: FDA-Public Use
  Company Number: None

PATIENT
  Sex: Male

DRUGS (2)
  1. METOPROLOL SUCCINATE [Suspect]
     Dosage: 100MG DAILY PO
     Route: 048
     Dates: start: 20110710
  2. FLUPHENAZINE [Suspect]
     Dosage: 50MG Q2W INJ  ESTIMATE ~2WKS OF 7/10

REACTIONS (3)
  - WEIGHT INCREASED [None]
  - POLYDIPSIA [None]
  - BRADYCARDIA [None]
